FAERS Safety Report 14393998 (Version 1)
Quarter: 2018Q1

REPORT INFORMATION
  Report Type: Spontaneous
  Country: US (occurrence: US)
  Receive Date: 20180116
  Receipt Date: 20180116
  Transmission Date: 20180509
  Serious: No
  Sender: FDA-Public Use
  Company Number: US-REGENERON PHARMACEUTICALS, INC.-2017-11996

PATIENT

DRUGS (1)
  1. EYLEA [Suspect]
     Active Substance: AFLIBERCEPT
     Indication: PRODUCT USED FOR UNKNOWN INDICATION
     Dosage: LAST INTENDED DOSE, DRAWN BUT NOT ADMINISTERED
     Dates: start: 20161213, end: 20161213

REACTIONS (2)
  - Malaise [Recovered/Resolved]
  - Drug dose omission [Unknown]

NARRATIVE: CASE EVENT DATE: 2016
